FAERS Safety Report 14833056 (Version 1)
Quarter: 2018Q2

REPORT INFORMATION
  Report Type: Spontaneous
  Country: GB (occurrence: GB)
  Receive Date: 20180501
  Receipt Date: 20180501
  Transmission Date: 20180711
  Serious: Yes (Disabling, Other)
  Sender: FDA-Public Use
  Company Number: GB-BAYER-2018-078762

PATIENT
  Age: 6 Year
  Sex: Female
  Weight: 69.85 kg

DRUGS (3)
  1. SUMATRIPTAN. [Concomitant]
     Active Substance: SUMATRIPTAN
  2. CANESTEN [Suspect]
     Active Substance: CLOTRIMAZOLE
     Indication: ABDOMINAL PAIN LOWER
     Route: 067
     Dates: start: 20170515, end: 20170516
  3. LEVOTHYROXINE. [Concomitant]
     Active Substance: LEVOTHYROXINE

REACTIONS (7)
  - Vaginal haematoma [Recovered/Resolved with Sequelae]
  - Skin haemorrhage [Unknown]
  - Vulvovaginal swelling [Recovered/Resolved with Sequelae]
  - Skin disorder [Not Recovered/Not Resolved]
  - Vulvovaginal erythema [Recovered/Resolved with Sequelae]
  - Vulvovaginal burning sensation [Recovered/Resolved with Sequelae]
  - Vulvovaginal pain [Recovered/Resolved with Sequelae]

NARRATIVE: CASE EVENT DATE: 20170516
